FAERS Safety Report 15330470 (Version 1)
Quarter: 2018Q3

REPORT INFORMATION
  Report Type: Spontaneous
  Country: PK (occurrence: PK)
  Receive Date: 20180829
  Receipt Date: 20180829
  Transmission Date: 20181010
  Serious: Yes (Other)
  Sender: FDA-Public Use
  Company Number: PK-JNJFOC-20180827270

PATIENT

DRUGS (2)
  1. HALOPERIDOL. [Suspect]
     Active Substance: HALOPERIDOL
     Indication: SCHIZOPHRENIA
     Route: 048
  2. RISPERIDONE. [Suspect]
     Active Substance: RISPERIDONE
     Indication: SCHIZOPHRENIA
     Route: 048

REACTIONS (10)
  - Anticholinergic syndrome [Unknown]
  - Extrapyramidal disorder [Unknown]
  - Hypersensitivity [Unknown]
  - Adverse event [Unknown]
  - Hormone level abnormal [Unknown]
  - Mental disorder [Unknown]
  - Treatment noncompliance [Unknown]
  - Tardive dyskinesia [Unknown]
  - Speech disorder [Unknown]
  - Autonomic nervous system imbalance [Unknown]
